FAERS Safety Report 23085307 (Version 1)
Quarter: 2023Q4

REPORT INFORMATION
  Report Type: Spontaneous
  Country: US (occurrence: None)
  Receive Date: 20231019
  Receipt Date: 20231019
  Transmission Date: 20240109
  Serious: Yes (Hospitalization)
  Sender: FDA-Public Use
  Company Number: None

PATIENT
  Age: 79 Year
  Sex: Male
  Weight: 81.2 kg

DRUGS (10)
  1. GEMCITABINE HYDROCHLORIDE [Suspect]
     Active Substance: GEMCITABINE HYDROCHLORIDE
     Dates: end: 20231006
  2. PACLITAXEL [Suspect]
     Active Substance: PACLITAXEL
     Dates: end: 20231006
  3. ALLOPURINOL [Concomitant]
     Active Substance: ALLOPURINOL
  4. APIXABAN [Concomitant]
     Active Substance: APIXABAN
  5. MIRTAZAPINE [Concomitant]
     Active Substance: MIRTAZAPINE
  6. OLANZAPINE [Concomitant]
     Active Substance: OLANZAPINE
  7. OMEPRAZOLE [Concomitant]
     Active Substance: OMEPRAZOLE
  8. ONDANSETRON [Concomitant]
     Active Substance: ONDANSETRON
  9. PANCRELIPASE [Concomitant]
     Active Substance: PANCRELIPASE
  10. TAMSULOSIN [Concomitant]
     Active Substance: TAMSULOSIN

REACTIONS (2)
  - Pyrexia [None]
  - Muscular weakness [None]

NARRATIVE: CASE EVENT DATE: 20231010
